FAERS Safety Report 10031698 (Version 1)
Quarter: 2014Q1

REPORT INFORMATION
  Report Type: Spontaneous
  Country: US (occurrence: US)
  Receive Date: 20140324
  Receipt Date: 20140324
  Transmission Date: 20141002
  Serious: Yes (Other)
  Sender: FDA-Public Use
  Company Number: US-PFIZER INC-2014083623

PATIENT
  Age: 56 Year
  Sex: Female

DRUGS (2)
  1. VENLAFAXINE HCL [Suspect]
     Indication: DEPRESSION
     Dosage: 300 MG, DAILY
  2. VENLAFAXINE HCL [Suspect]
     Indication: BIPOLAR DISORDER

REACTIONS (4)
  - Suicidal ideation [Unknown]
  - Visual impairment [Unknown]
  - Palpitations [Unknown]
  - Intentional drug misuse [Unknown]
